FAERS Safety Report 12223237 (Version 1)
Quarter: 2016Q1

REPORT INFORMATION
  Report Type: Report from Study
  Country: BR (occurrence: BR)
  Receive Date: 20160330
  Receipt Date: 20160330
  Transmission Date: 20160526
  Serious: Yes (Other)
  Sender: FDA-Public Use
  Company Number: PHHY2016BR041460

PATIENT
  Sex: Female

DRUGS (2)
  1. DIOVAN [Suspect]
     Active Substance: VALSARTAN
     Indication: BLOOD PRESSURE ABNORMAL
     Dosage: 80 MG, UNK
     Route: 048
  2. DIOVAN HCT [Suspect]
     Active Substance: HYDROCHLOROTHIAZIDE\VALSARTAN
     Indication: BLOOD PRESSURE ABNORMAL
     Dosage: VALSARTAN 80 MG /HYDROCHLOROTHIAZIDE 12.5 MG
     Route: 048

REACTIONS (4)
  - Blood pressure decreased [Unknown]
  - Diabetes mellitus [Unknown]
  - Arterial restenosis [Unknown]
  - Emotional disorder [Unknown]
